FAERS Safety Report 4972865-6 (Version None)
Quarter: 2006Q2

REPORT INFORMATION
  Report Type: 
  Country: None (occurrence: None)
  Receive Date: 20060414
  Receipt Date: 20060116
  Transmission Date: 20061013
  Serious: Yes (Life-Threatening, Hospitalization)
  Sender: FDA-Public Use
  Company Number: PHHO2006BE01074

PATIENT
  Age: 64 Year
  Sex: Male

DRUGS (6)
  1. PROGRAF [Concomitant]
     Indication: HEART TRANSPLANT
  2. CERTICAN [Suspect]
     Indication: HEART TRANSPLANT
     Dosage: 1.25 MG/DAY
     Route: 048
     Dates: start: 20051227, end: 20060107
  3. NEORAL [Suspect]
     Indication: HEART TRANSPLANT
     Route: 048
     Dates: start: 20051227
  4. CORTICOSTEROIDS [Suspect]
     Indication: HEART TRANSPLANT
  5. SOLU-MEDROL [Concomitant]
     Dates: start: 20051227
  6. CLEXANE [Concomitant]
     Dates: start: 20051227

REACTIONS (11)
  - ANURIA [None]
  - C-REACTIVE PROTEIN INCREASED [None]
  - CEREBRAL ISCHAEMIA [None]
  - CONFUSIONAL STATE [None]
  - DELIRIUM [None]
  - ENCEPHALOPATHY [None]
  - EPILEPSY [None]
  - HYPERAMMONAEMIA [None]
  - RENAL FAILURE [None]
  - SEPSIS [None]
  - URINARY TRACT INFECTION [None]
